FAERS Safety Report 5257091-8 (Version None)
Quarter: 2007Q1

REPORT INFORMATION
  Report Type: 
  Country: None (occurrence: None)
  Receive Date: 20070307
  Receipt Date: 20070301
  Transmission Date: 20070707
  Serious: Yes (Hospitalization)
  Sender: FDA-Public Use
  Company Number: BR-BRISTOL-MYERS SQUIBB COMPANY-13678867

PATIENT
  Age: 49 Year
  Sex: Female

DRUGS (1)
  1. CEFEPIME [Suspect]
     Indication: SEPSIS

REACTIONS (6)
  - COUGH [None]
  - ERYTHEMA [None]
  - LEUKOPENIA [None]
  - PETECHIAE [None]
  - PROSTRATION [None]
  - PYREXIA [None]
